FAERS Safety Report 6331761-2 (Version None)
Quarter: 2009Q3

REPORT INFORMATION
  Report Type: 
  Country: None (occurrence: None)
  Receive Date: 20090826
  Receipt Date: 20090819
  Transmission Date: 20100115
  Serious: Yes (Death)
  Sender: FDA-Public Use
  Company Number: SPV1-2009-00850

PATIENT
  Age: 7 Year
  Sex: Male
  Weight: 30.4 kg

DRUGS (4)
  1. VYVANSE [Suspect]
     Indication: ATTENTION DEFICIT/HYPERACTIVITY DISORDER
     Dosage: 30 MG, 1X/DAY:QD, ORAL
     Route: 048
     Dates: start: 20081209, end: 20090331
  2. SYMBYAX [Suspect]
     Indication: AGGRESSION
     Dosage: 3/25MG, 1X/DAY:GD @HS; (3MG OLANZAPINE/25MG FLUOXETINE); 50 MG, 1X/DAY:QD, ORAL
     Route: 048
     Dates: start: 20090318
  3. SYMBYAX [Suspect]
     Indication: AGGRESSION
     Dosage: 3/25MG, 1X/DAY:GD @HS; (3MG OLANZAPINE/25MG FLUOXETINE); 50 MG, 1X/DAY:QD, ORAL
     Route: 048
     Dates: start: 20090401
  4. LEXAPRO [Concomitant]

REACTIONS (10)
  - AGGRESSION [None]
  - ANXIETY [None]
  - ASPHYXIA [None]
  - COMPLETED SUICIDE [None]
  - COMPULSIONS [None]
  - CONDITION AGGRAVATED [None]
  - CONDUCT DISORDER [None]
  - CRYING [None]
  - FLAT AFFECT [None]
  - IMPULSE-CONTROL DISORDER [None]
